FAERS Safety Report 15844544 (Version 3)
Quarter: 2020Q1

REPORT INFORMATION
  Report Type: Report from Study
  Country: US (occurrence: US)
  Receive Date: 20190118
  Receipt Date: 20200214
  Transmission Date: 20200409
  Serious: No
  Sender: FDA-Public Use
  Company Number: PHEH2019US002541

PATIENT
  Sex: Male

DRUGS (1)
  1. ENTRESTO [Suspect]
     Active Substance: SACUBITRIL\VALSARTAN
     Indication: CARDIAC FAILURE
     Dosage: 50 MG(24 MG SACUBITRIL/26 MG VALSARTAN), BID
     Route: 048

REACTIONS (2)
  - Dyspnoea [Unknown]
  - Nasopharyngitis [Unknown]
